FAERS Safety Report 7874715-7 (Version None)
Quarter: 2011Q4

REPORT INFORMATION
  Report Type: 
  Country: None (occurrence: None)
  Receive Date: 20111014
  Receipt Date: 20101119
  Transmission Date: 20120403
  Serious: Yes (Hospitalization)
  Sender: FDA-Public Use
  Company Number: 1000017468

PATIENT
  Age: 55 Year
  Sex: Male

DRUGS (1)
  1. LEXAPRO [Suspect]
     Dates: start: 20100101

REACTIONS (2)
  - INAPPROPRIATE ANTIDIURETIC HORMONE SECRETION [None]
  - HYPONATRAEMIA [None]
